FAERS Safety Report 6073113-9 (Version None)
Quarter: 2009Q1

REPORT INFORMATION
  Report Type: 
  Country: None (occurrence: None)
  Receive Date: 20090211
  Receipt Date: 20090130
  Transmission Date: 20090719
  Serious: Yes (Hospitalization, Disabling)
  Sender: FDA-Public Use
  Company Number: CA-JNJFOC-20080604473

PATIENT
  Sex: Female
  Weight: 65 kg

DRUGS (2)
  1. REMICADE [Suspect]
     Route: 042
  2. REMICADE [Suspect]
     Indication: PSORIASIS
     Route: 042

REACTIONS (7)
  - ABDOMINAL DISCOMFORT [None]
  - MUSCULOSKELETAL STIFFNESS [None]
  - PAIN [None]
  - PRURITUS [None]
  - SERUM SICKNESS [None]
  - TRISMUS [None]
  - URTICARIA [None]
